FAERS Safety Report 8996495 (Version 1)
Quarter: 2013Q1

REPORT INFORMATION
  Report Type: Spontaneous
  Country: US (occurrence: US)
  Receive Date: 20130104
  Receipt Date: 20130104
  Transmission Date: 20140127
  Serious: No
  Sender: FDA-Public Use
  Company Number: US-009507513-1212USA011050

PATIENT
  Sex: Female

DRUGS (7)
  1. DULERA [Suspect]
     Indication: CHRONIC OBSTRUCTIVE PULMONARY DISEASE
     Dosage: UNK
     Dates: start: 201201
  2. ADVAIR [Suspect]
  3. LIPITOR [Concomitant]
  4. PLAVIX [Concomitant]
  5. SYNTHROID [Concomitant]
  6. ASPIRIN [Concomitant]
  7. LORATADINE [Concomitant]

REACTIONS (3)
  - Dysphonia [Not Recovered/Not Resolved]
  - Product quality issue [Unknown]
  - Drug dose omission [Unknown]
